FAERS Safety Report 9147267 (Version 1)
Quarter: 2013Q1

REPORT INFORMATION
  Report Type: Spontaneous
  Country: DK (occurrence: None)
  Receive Date: 20130226
  Receipt Date: 20130226
  Transmission Date: 20140127
  Serious: Yes (Death)
  Sender: FDA-Public Use
  Company Number: 2013MA001300

PATIENT
  Age: 73 Year
  Sex: Female

DRUGS (2)
  1. NAPROXEN [Suspect]
     Indication: PAIN
     Dosage: ; PO?08/--/2012  -  08/29/2012
     Route: 048
     Dates: start: 201208, end: 20120829
  2. ATENOLOL [Concomitant]

REACTIONS (7)
  - Gastric ulcer perforation [None]
  - Back pain [None]
  - Acute respiratory failure [None]
  - Cardiovascular disorder [None]
  - Metabolic acidosis [None]
  - Enterobacter sepsis [None]
  - Hypotension [None]
